FAERS Safety Report 5251408-6 (Version None)
Quarter: 2007Q1

REPORT INFORMATION
  Report Type: 
  Country: None (occurrence: None)
  Receive Date: 20070228
  Receipt Date: 20060831
  Transmission Date: 20070707
  Serious: No
  Sender: FDA-Public Use
  Company Number: US-GLAXOSMITHKLINE-A0604506A

PATIENT
  Age: 59 Year
  Sex: Female

DRUGS (10)
  1. LAMICTAL [Suspect]
     Indication: BIPOLAR DISORDER
     Dosage: 200MG PER DAY
     Route: 048
  2. VISTARIL [Concomitant]
  3. POTASSIUM ACETATE [Concomitant]
  4. LIPITOR [Concomitant]
  5. ZYRTEC [Concomitant]
  6. ATENOL [Concomitant]
  7. TRAZODONE HCL [Concomitant]
  8. NIASPAN [Concomitant]
  9. HYDROCHLOROTHIAZIDE [Concomitant]
  10. ASPIRIN [Concomitant]

REACTIONS (5)
  - DYSARTHRIA [None]
  - EXPIRED DRUG ADMINISTERED [None]
  - FEELING JITTERY [None]
  - RASH [None]
  - TREMOR [None]
